FAERS Safety Report 14738851 (Version 3)
Quarter: 2018Q2

REPORT INFORMATION
  Report Type: Report from Study
  Country: FR (occurrence: FR)
  Receive Date: 20180409
  Receipt Date: 20180525
  Transmission Date: 20180711
  Serious: Yes (Death, Hospitalization, Disabling)
  Sender: FDA-Public Use
  Company Number: FR-B.I. PHARMACEUTICALS,INC./RIDGEFIELD-2018-BI-014887

PATIENT
  Age: 69 Year
  Sex: Female

DRUGS (11)
  1. PEMBROLIZUMAB. [Suspect]
     Active Substance: PEMBROLIZUMAB
     Indication: HEPATIC CANCER
     Route: 042
     Dates: start: 20180222, end: 20180222
  2. IMOVANE [Concomitant]
     Active Substance: ZOPICLONE
     Indication: INSOMNIA
     Route: 048
     Dates: start: 20180125
  3. INNOHEP [Concomitant]
     Active Substance: TINZAPARIN SODIUM
     Indication: PHLEBITIS
  4. AUGMENTIN [Concomitant]
     Active Substance: AMOXICILLIN\CLAVULANATE POTASSIUM
     Indication: PYREXIA
     Route: 048
     Dates: start: 20180313
  5. INNOHEP [Concomitant]
     Active Substance: TINZAPARIN SODIUM
     Indication: PORTAL VEIN THROMBOSIS
     Route: 058
     Dates: start: 20170701
  6. PRIMPERAN [Concomitant]
     Active Substance: METOCLOPRAMIDE HYDROCHLORIDE
     Indication: NAUSEA
     Dosage: 10 MG 3 TIMES A DAY IF NEEDED
     Route: 048
     Dates: start: 20180116
  7. NINTEDANIB [Suspect]
     Active Substance: NINTEDANIB
     Indication: HEPATIC CANCER
     Route: 048
     Dates: start: 20180222, end: 20180312
  8. ESOMEPRAZOLE [Concomitant]
     Active Substance: ESOMEPRAZOLE
     Indication: DUODENOGASTRIC REFLUX
     Route: 048
     Dates: start: 20170701
  9. DAFALGAN [Concomitant]
     Active Substance: ACETAMINOPHEN
     Indication: PAIN
     Dosage: DAILY DOSE: 1G 3 TIMES A DAY IF NEEDED
     Route: 048
     Dates: start: 20170701
  10. TAZOCILLINE [Concomitant]
     Active Substance: PIPERACILLIN SODIUM\TAZOBACTAM SODIUM
     Indication: PYREXIA
     Route: 042
     Dates: start: 20180312
  11. CIFLOX [Concomitant]
     Active Substance: CIPROFLOXACIN
     Indication: COUGH
     Route: 048
     Dates: start: 20180206

REACTIONS (3)
  - Malignant neoplasm progression [Fatal]
  - Gastric haemorrhage [Not Recovered/Not Resolved]
  - Gastrointestinal infection [Not Recovered/Not Resolved]

NARRATIVE: CASE EVENT DATE: 20180312
